FAERS Safety Report 7622007-3 (Version None)
Quarter: 2011Q3

REPORT INFORMATION
  Report Type: 
  Country: None (occurrence: None)
  Receive Date: 20110720
  Receipt Date: 20101101
  Transmission Date: 20111222
  Serious: Yes (Hospitalization)
  Sender: FDA-Public Use
  Company Number: US-BAYER-201033612NA

PATIENT
  Age: 21 Year
  Sex: Female
  Weight: 72.6 kg

DRUGS (6)
  1. MOBIC [Concomitant]
     Dosage: UNK
     Dates: start: 20071031
  2. YAZ [Suspect]
     Indication: OVARIAN CYST
  3. YASMIN [Suspect]
     Indication: OVARIAN CYST
  4. YAZ [Suspect]
     Indication: MENSTRUAL CYCLE MANAGEMENT
     Dosage: UNK UNK, UNK
     Route: 048
     Dates: start: 20070501, end: 20070901
  5. LEXAPRO [Concomitant]
  6. YASMIN [Suspect]
     Indication: MENSTRUAL CYCLE MANAGEMENT
     Dosage: UNK UNK, UNK
     Route: 048
     Dates: start: 20070901, end: 20071101

REACTIONS (4)
  - THROMBOSIS [None]
  - CHEST PAIN [None]
  - PULMONARY EMBOLISM [None]
  - DYSPNOEA [None]
